FAERS Safety Report 8559603-5 (Version None)
Quarter: 2012Q3

REPORT INFORMATION
  Report Type: 
  Country: None (occurrence: None)
  Receive Date: 20120727
  Receipt Date: 20120727
  Transmission Date: 20120928
  Serious: Yes (Hospitalization)
  Sender: FDA-Public Use
  Company Number: None

PATIENT
  Age: 76 Year
  Sex: Female
  Weight: 60.6 kg

DRUGS (7)
  1. CHONDROITIN - GLUCOSAMINE [Concomitant]
  2. PRAVASTATIN [Concomitant]
  3. M.V.I. [Concomitant]
  4. ACTONEL [Concomitant]
  5. CA + VIT D [Concomitant]
  6. VITAMIN D [Concomitant]
  7. AGGRENOX [Suspect]
     Indication: CEREBROVASCULAR ACCIDENT
     Dosage: ONE TABLET BID PO CHRONIC
     Route: 048

REACTIONS (2)
  - LOWER GASTROINTESTINAL HAEMORRHAGE [None]
  - HAEMATURIA [None]
